FAERS Safety Report 9912734 (Version 1)
Quarter: 2014Q1

REPORT INFORMATION
  Report Type: Spontaneous
  Country: US (occurrence: None)
  Receive Date: 20140218
  Receipt Date: 20140218
  Transmission Date: 20141002
  Serious: Yes (Life-Threatening, Other)
  Sender: FDA-Public Use
  Company Number: None

PATIENT
  Age: 80 Year
  Sex: Male

DRUGS (1)
  1. HEPARIN [Suspect]
     Indication: PORTAL VEIN THROMBOSIS
     Dates: start: 20130911, end: 20130919

REACTIONS (1)
  - Heparin-induced thrombocytopenia [None]
